FAERS Safety Report 9862477 (Version 3)
Quarter: 2014Q1

REPORT INFORMATION
  Report Type: Spontaneous
  Country: US (occurrence: US)
  Receive Date: 20140203
  Receipt Date: 20140205
  Transmission Date: 20141002
  Serious: Yes (Hospitalization)
  Sender: FDA-Public Use
  Company Number: GXBR2013US002072

PATIENT
  Age: 42 Year
  Sex: Female
  Weight: 89.8 kg

DRUGS (10)
  1. ENOXAPARIN SODIUM [Suspect]
     Indication: DEEP VEIN THROMBOSIS
     Dosage: 100 MG, BID
     Route: 058
     Dates: start: 201302, end: 201309
  2. ENOXAPARIN SODIUM [Suspect]
     Dosage: 100 MG, BID
     Route: 058
     Dates: start: 201309, end: 201310
  3. MINIPRES [Concomitant]
     Dosage: 11 MG, QHS
     Dates: start: 20130916, end: 20130921
  4. HYDROCHLOROTHIAZIDE [Concomitant]
     Dosage: 25 MG, QD
     Dates: start: 20130916, end: 20130921
  5. ZETIA [Concomitant]
     Dosage: 10 MG, QD
     Dates: start: 20130916, end: 20130921
  6. DEXILANT [Concomitant]
     Dosage: 60 DF, BID
     Dates: start: 20130916, end: 20130921
  7. LIPITOR [Concomitant]
     Dosage: 20 MG, QD
     Dates: start: 20130916, end: 20130921
  8. BUSPAR [Concomitant]
     Dosage: 7.5 MG, BID
     Dates: start: 20130916, end: 20130921
  9. VALIUM [Concomitant]
     Dosage: 5 MG, BID
     Dates: start: 20130916, end: 20130921
  10. LACTULOSE [Concomitant]
     Dosage: 30 ML, Q12H
     Dates: start: 20130916, end: 20130921

REACTIONS (5)
  - Gastritis [Unknown]
  - Abdominal pain [Unknown]
  - Nausea [Unknown]
  - Vomiting [Unknown]
  - Gastrointestinal haemorrhage [Recovered/Resolved]
